FAERS Safety Report 11172780 (Version 2)
Quarter: 2015Q3

REPORT INFORMATION
  Report Type: Report from Study
  Country: ZA (occurrence: ZA)
  Receive Date: 20150608
  Receipt Date: 20150708
  Transmission Date: 20151125
  Serious: Yes (Death)
  Sender: FDA-Public Use
  Company Number: ZA-009507513-1506ZAF003651

PATIENT
  Age: 79 Year
  Sex: Male
  Weight: 50.2 kg

DRUGS (4)
  1. PEMBROLIZUMAB. [Suspect]
     Active Substance: PEMBROLIZUMAB
     Indication: NON-SMALL CELL LUNG CANCER
     Dosage: 200 MG, Q3W
     Route: 042
     Dates: start: 20150511, end: 20150511
  2. ACETAMINOPHEN. [Concomitant]
     Active Substance: ACETAMINOPHEN
     Indication: PREMEDICATION
     Dosage: TOTAL DAILY DOSE 1000 MG, PRN
     Route: 048
     Dates: start: 20150511
  3. PEMBROLIZUMAB. [Suspect]
     Active Substance: PEMBROLIZUMAB
     Dosage: 200 MG, Q3W
     Route: 042
     Dates: start: 20150601, end: 20150601
  4. PROMETHAZINE [Concomitant]
     Active Substance: PROMETHAZINE\PROMETHAZINE HYDROCHLORIDE
     Indication: PREMEDICATION
     Dosage: TOTAL DAILY DOSE 12.5 MG, PRN
     Route: 042
     Dates: start: 20150511

REACTIONS (1)
  - Death [Fatal]

NARRATIVE: CASE EVENT DATE: 20150603
